FAERS Safety Report 16936487 (Version 2)
Quarter: 2019Q4

REPORT INFORMATION
  Report Type: Spontaneous
  Country: US (occurrence: US)
  Receive Date: 20191018
  Receipt Date: 20191106
  Transmission Date: 20200122
  Serious: Yes (Hospitalization, Other)
  Sender: FDA-Public Use
  Company Number: US-ADAPT PHARMA INC-2019ADP00096

PATIENT
  Age: 56 Year
  Sex: Male
  Weight: 97.52 kg

DRUGS (12)
  1. LYRICA [Suspect]
     Active Substance: PREGABALIN
     Indication: NEURALGIA
     Dosage: 450 MG, 1X/DAY
     Route: 048
     Dates: start: 2016
  2. APIXABAN [Concomitant]
     Active Substance: APIXABAN
     Dosage: 10 MG, 1X/DAY
     Route: 065
  3. FUROSEMIDE, POTASSIUM CHLORIDE [Concomitant]
     Dosage: 80 MG, 1X/DAY
     Route: 065
  4. OMEPRAZOLE. [Concomitant]
     Active Substance: OMEPRAZOLE
     Dosage: 40 MG, 1X/DAY
     Route: 065
  5. ROSUVASTATIN CALCIUM. [Concomitant]
     Active Substance: ROSUVASTATIN CALCIUM
     Dosage: 10 MG, 1X/DAY
     Route: 065
  6. CYMBALTA [Suspect]
     Active Substance: DULOXETINE HYDROCHLORIDE
     Indication: BACK PAIN
     Dosage: 90 MG, 1X/DAY
     Route: 048
     Dates: start: 2018
  7. LYRICA [Suspect]
     Active Substance: PREGABALIN
     Indication: BACK PAIN
  8. CYMBALTA [Suspect]
     Active Substance: DULOXETINE HYDROCHLORIDE
     Indication: NEURALGIA
     Dosage: 60 MG, 1X/DAY
     Route: 048
  9. QUETIAPINE. [Concomitant]
     Active Substance: QUETIAPINE
     Dosage: 600 MG, 1X/DAY
     Route: 065
  10. NALOXONE HYDROCHLORIDE. [Suspect]
     Active Substance: NALOXONE HYDROCHLORIDE
     Indication: PRODUCT USED FOR UNKNOWN INDICATION
     Dosage: UNK
     Route: 065
  11. SPIRONOLACTONE. [Concomitant]
     Active Substance: SPIRONOLACTONE
     Dosage: 25 MG, 1X/DAY
     Route: 065
  12. METFORMIN HYDROCHLORIDE. [Concomitant]
     Active Substance: METFORMIN HYDROCHLORIDE
     Dosage: 500 MG, UNK
     Route: 065

REACTIONS (17)
  - Depression [Not Recovered/Not Resolved]
  - Thrombosis [Unknown]
  - Loss of consciousness [Unknown]
  - Syncope [Unknown]
  - Blood pressure decreased [Unknown]
  - Pancreatitis [Recovered/Resolved]
  - Somnolence [Recovered/Resolved]
  - Diabetes mellitus [Recovered/Resolved]
  - Mood altered [Not Recovered/Not Resolved]
  - Renal failure [Unknown]
  - Vomiting [Recovered/Resolved]
  - Personality change [Not Recovered/Not Resolved]
  - Malaise [Not Recovered/Not Resolved]
  - Squamous cell carcinoma [Recovered/Resolved]
  - Abnormal behaviour [Not Recovered/Not Resolved]
  - Asthenia [Not Recovered/Not Resolved]
  - Loss of personal independence in daily activities [Not Recovered/Not Resolved]

NARRATIVE: CASE EVENT DATE: 201803
